FAERS Safety Report 9974015 (Version 2)
Quarter: 2014Q1

REPORT INFORMATION
  Report Type: Report from Study
  Country: US (occurrence: US)
  Receive Date: 20140306
  Receipt Date: 20140306
  Transmission Date: 20141002
  Serious: No
  Sender: FDA-Public Use
  Company Number: US-ABBVIE-12P-163-1019065-00

PATIENT
  Age: 39 Year
  Sex: Female
  Weight: 104.42 kg

DRUGS (13)
  1. HUMIRA [Suspect]
     Indication: ANKYLOSING SPONDYLITIS
     Route: 058
     Dates: start: 20120703, end: 201301
  2. HUMIRA [Suspect]
     Route: 058
     Dates: start: 201301
  3. PLAQUENIL [Concomitant]
     Indication: PRODUCT USED FOR UNKNOWN INDICATION
     Dosage: 2 TABS DAILY
  4. PREDNISONE [Concomitant]
     Indication: ANKYLOSING SPONDYLITIS
     Dosage: 7.5 MG DAILY
  5. AMITRIPTYLINE [Concomitant]
     Indication: DEPRESSION
     Dosage: 12.5 MG DAILY
  6. AMITRIPTYLINE [Concomitant]
     Indication: INSOMNIA
  7. ZOLOFT [Concomitant]
     Indication: DEPRESSION
  8. TOPAMAX [Concomitant]
     Indication: MIGRAINE
  9. MIRAPEX [Concomitant]
     Indication: RESTLESS LEGS SYNDROME
  10. METHOTREXATE [Concomitant]
     Indication: PRODUCT USED FOR UNKNOWN INDICATION
  11. HYDROXYCHLOROQUINE [Concomitant]
     Indication: ANKYLOSING SPONDYLITIS
  12. SERTRALINE [Concomitant]
     Indication: ANXIETY
  13. PRAMIPEXOLE [Concomitant]
     Indication: RESTLESS LEGS SYNDROME

REACTIONS (12)
  - Device malfunction [Not Recovered/Not Resolved]
  - Drug ineffective [Not Recovered/Not Resolved]
  - Incorrect dose administered [Not Recovered/Not Resolved]
  - Injection site pain [Recovered/Resolved]
  - Drug dose omission [Unknown]
  - Wrong technique in drug usage process [Unknown]
  - Arthralgia [Recovering/Resolving]
  - Joint swelling [Recovering/Resolving]
  - Diarrhoea [Recovering/Resolving]
  - Bone pain [Recovering/Resolving]
  - Therapeutic response unexpected [Not Recovered/Not Resolved]
  - Raynaud^s phenomenon [Not Recovered/Not Resolved]
